FAERS Safety Report 4495117-X (Version None)
Quarter: 2004Q4

REPORT INFORMATION
  Report Type: 
  Country: None (occurrence: None)
  Receive Date: 20041103
  Receipt Date: 20041018
  Transmission Date: 20050328
  Serious: Yes (Hospitalization)
  Sender: FDA-Public Use
  Company Number: 203038

PATIENT
  Age: 58 Year
  Sex: Female

DRUGS (8)
  1. AVONEX [Suspect]
     Indication: MULTIPLE SCLEROSIS
     Dosage: 30 MCG QW IM
     Route: 030
     Dates: start: 20011015
  2. AVONEX [Suspect]
     Indication: MULTIPLE SCLEROSIS
     Dosage: 30 MCG QW IM
     Route: 030
  3. ZOLOFT [Concomitant]
  4. AMBIEN [Concomitant]
  5. VICODIN [Concomitant]
  6. LANOXIN [Concomitant]
  7. DURAGESIC [Concomitant]
  8. ATIVAN [Concomitant]

REACTIONS (6)
  - ACUTE PRERENAL FAILURE [None]
  - ATELECTASIS [None]
  - CHOLELITHIASIS [None]
  - DEHYDRATION [None]
  - PANCREATITIS [None]
  - POST PROCEDURAL COMPLICATION [None]
